FAERS Safety Report 21484656 (Version 4)
Quarter: 2022Q4

REPORT INFORMATION
  Report Type: Report from Study
  Country: US (occurrence: US)
  Receive Date: 20221020
  Receipt Date: 20221122
  Transmission Date: 20230112
  Serious: Yes (Other)
  Sender: FDA-Public Use
  Company Number: US-NOVARTISTESTPH-NVSC2022US235885

PATIENT
  Sex: Female

DRUGS (3)
  1. KISQALI [Suspect]
     Active Substance: RIBOCICLIB
     Indication: Breast cancer
     Dosage: 400 MG, QD (TAKE 2 TABLETS (400MG) BY MOUTH DAILY FOR 21 DAYS, WITHHOLD FOR 7 DAYS, THEN REPEAT CYCL
     Route: 048
     Dates: start: 202209
  2. KISQALI [Suspect]
     Active Substance: RIBOCICLIB
     Dosage: 200 MG, QD (1 TABLET)
     Route: 065
  3. KISQALI [Suspect]
     Active Substance: RIBOCICLIB
     Dosage: 1 DOSAGE FORM, QD (PILL)
     Route: 065

REACTIONS (7)
  - Peripheral swelling [Unknown]
  - Dehydration [Unknown]
  - Swelling [Unknown]
  - Skin exfoliation [Unknown]
  - Rash [Unknown]
  - Joint swelling [Unknown]
  - Weight decreased [Unknown]
